FAERS Safety Report 5606505-X (Version None)
Quarter: 2008Q1

REPORT INFORMATION
  Report Type: 
  Country: None (occurrence: None)
  Receive Date: 20080129
  Receipt Date: 20080123
  Transmission Date: 20080703
  Serious: Yes (Other)
  Sender: FDA-Public Use
  Company Number: A0704906A

PATIENT
  Age: 76 Year
  Sex: Male

DRUGS (3)
  1. ALTABAX [Suspect]
     Indication: INFECTION
     Dosage: 1APP TWICE PER DAY
     Route: 061
     Dates: start: 20071201
  2. VYTORIN [Concomitant]
  3. ASPIRIN [Concomitant]

REACTIONS (3)
  - DRUG INEFFECTIVE [None]
  - HAEMORRHAGE [None]
  - INFECTION [None]
